FAERS Safety Report 10733915 (Version 6)
Quarter: 2015Q2

REPORT INFORMATION
  Report Type: Report from Study
  Country: US (occurrence: US)
  Receive Date: 20150123
  Receipt Date: 20150625
  Transmission Date: 20150821
  Serious: Yes (Hospitalization, Other)
  Sender: FDA-Public Use
  Company Number: US-SA-2014SA064910

PATIENT
  Age: 70 Year
  Sex: Female

DRUGS (8)
  1. AUBAGIO [Suspect]
     Active Substance: TERIFLUNOMIDE
     Indication: MULTIPLE SCLEROSIS
     Route: 048
     Dates: start: 20140430
  2. NEURONTIN [Concomitant]
     Active Substance: GABAPENTIN
  3. BACLOFEN. [Concomitant]
     Active Substance: BACLOFEN
  4. TYLENOL [Concomitant]
     Active Substance: ACETAMINOPHEN
  5. NITROGLYCERINE [Concomitant]
     Active Substance: NITROGLYCERIN
     Indication: PAIN IN EXTREMITY
  6. ADVIL [Concomitant]
     Active Substance: IBUPROFEN
  7. TRAMADOL [Concomitant]
     Active Substance: TRAMADOL
  8. AUBAGIO [Suspect]
     Active Substance: TERIFLUNOMIDE
     Indication: MULTIPLE SCLEROSIS
     Route: 048

REACTIONS (13)
  - Muscle spasms [Recovering/Resolving]
  - Chest pain [Unknown]
  - Gait disturbance [Unknown]
  - Drug dose omission [Unknown]
  - Pain in extremity [Unknown]
  - Myocardial infarction [Unknown]
  - Fatigue [Unknown]
  - Intervertebral disc protrusion [Unknown]
  - Emotional disorder [Unknown]
  - Anxiety [Unknown]
  - Asthenia [Unknown]
  - Chest discomfort [Unknown]
  - Muscle spasms [Unknown]

NARRATIVE: CASE EVENT DATE: 20150108
